FAERS Safety Report 23147660 (Version 1)
Quarter: 2023Q4

REPORT INFORMATION
  Report Type: Other
  Country: DE (occurrence: None)
  Receive Date: 20231106
  Receipt Date: 20231106
  Transmission Date: 20240110
  Serious: No
  Sender: FDA-Public Use
  Company Number: DE-ROCHE-3206080

PATIENT
  Age: 39 Year
  Sex: Male

DRUGS (4)
  1. OCREVUS [Suspect]
     Active Substance: OCRELIZUMAB
     Indication: Relapsing-remitting multiple sclerosis
     Route: 042
     Dates: start: 20220830
  2. OCREVUS [Suspect]
     Active Substance: OCRELIZUMAB
     Route: 042
     Dates: start: 202303
  3. OCREVUS [Suspect]
     Active Substance: OCRELIZUMAB
     Route: 042
  4. TOLTERODINE [Concomitant]
     Active Substance: TOLTERODINE
     Dosage: 1-0-0

REACTIONS (7)
  - Fatigue [Recovered/Resolved]
  - Disturbance in attention [Recovered/Resolved]
  - Cognitive disorder [Not Recovered/Not Resolved]
  - Nasopharyngitis [Recovered/Resolved]
  - COVID-19 [Recovered/Resolved]
  - Fall [Unknown]
  - Grip strength decreased [Not Recovered/Not Resolved]

NARRATIVE: CASE EVENT DATE: 20220913
